FAERS Safety Report 5694982-8 (Version None)
Quarter: 2008Q2

REPORT INFORMATION
  Report Type: 
  Country: None (occurrence: None)
  Receive Date: 20080404
  Receipt Date: 20080331
  Transmission Date: 20081010
  Serious: Yes (Hospitalization, Other)
  Sender: FDA-Public Use
  Company Number: BR-PFIZER INC-2007042653

PATIENT
  Sex: Male

DRUGS (1)
  1. VIAGRA [Suspect]
     Indication: ERECTILE DYSFUNCTION
     Route: 048

REACTIONS (4)
  - BLOOD GLUCOSE FLUCTUATION [None]
  - DIABETES MELLITUS [None]
  - GALLBLADDER CANCER [None]
  - PROSTATE CANCER [None]
